FAERS Safety Report 6543675-3 (Version None)
Quarter: 2010Q1

REPORT INFORMATION
  Report Type: 
  Country: None (occurrence: None)
  Receive Date: 20100120
  Receipt Date: 20100112
  Transmission Date: 20100710
  Serious: Yes (Hospitalization)
  Sender: FDA-Public Use
  Company Number: FR-ASTRAZENECA-2009SE04366

PATIENT
  Age: 44 Year
  Sex: Male

DRUGS (8)
  1. CRESTOR [Suspect]
     Indication: DYSLIPIDAEMIA
     Route: 048
     Dates: end: 20090325
  2. NOVOMIX [Concomitant]
  3. TAREG [Concomitant]
  4. CLONAZEPAM [Concomitant]
     Route: 048
  5. LEVOTHYROXINE SODIUM [Concomitant]
     Route: 048
     Dates: end: 20090223
  6. LEVOTHYROXINE SODIUM [Concomitant]
     Route: 048
     Dates: start: 20090325
  7. CALCIUM/VITAMIN D3 [Concomitant]
  8. INSULIN NPH/ASP ART [Concomitant]

REACTIONS (4)
  - HYPOCALCAEMIA [None]
  - HYPONATRAEMIA [None]
  - MYOPATHY [None]
  - RHABDOMYOLYSIS [None]
